FAERS Safety Report 6748619-7 (Version None)
Quarter: 2010Q2

REPORT INFORMATION
  Report Type: 
  Country: None (occurrence: None)
  Receive Date: 20100601
  Receipt Date: 20100521
  Transmission Date: 20101027
  Serious: Yes (Hospitalization)
  Sender: FDA-Public Use
  Company Number: US-JNJFOC-20100509065

PATIENT
  Age: 50 Year
  Sex: Female

DRUGS (2)
  1. NUCYNTA [Suspect]
     Indication: ANALGESIC THERAPY
     Route: 048
  2. OXYCONTIN [Concomitant]
     Indication: ANALGESIC THERAPY
     Route: 048

REACTIONS (2)
  - PSYCHOTIC DISORDER [None]
  - SUICIDAL IDEATION [None]
